FAERS Safety Report 6828593-5 (Version None)
Quarter: 2010Q3

REPORT INFORMATION
  Report Type: 
  Country: None (occurrence: None)
  Receive Date: 20100702
  Receipt Date: 20100617
  Transmission Date: 20110219
  Serious: Yes (Hospitalization)
  Sender: FDA-Public Use
  Company Number: 20100290

PATIENT
  Age: 43 Year
  Sex: Female
  Weight: 69.4003 kg

DRUGS (13)
  1. VENOFER [Suspect]
     Indication: IRON DEFICIENCY ANAEMIA
     Dosage: 200 MG X 1, 2 TIMES PER TOTAL INTRAVENOUS
     Route: 042
     Dates: start: 20100607, end: 20100610
  2. VENOFER [Suspect]
     Indication: RENAL IMPAIRMENT
     Dosage: 200 MG X 1, 2 TIMES PER TOTAL INTRAVENOUS
     Route: 042
     Dates: start: 20100607, end: 20100610
  3. ALLOPURINOL [Concomitant]
  4. CELLCEPT [Concomitant]
  5. FISH OIL (FISH OIL) [Concomitant]
  6. FOLIC ACID [Concomitant]
  7. LEVOTHYROXINE SODIUM [Concomitant]
  8. LOZOL [Concomitant]
  9. MULTIVITAMIN (MULTIVITAMIN) [Concomitant]
  10. PREDNISONE TAB [Concomitant]
  11. RAPAMUNE [Concomitant]
  12. SENOKOT-S (DOCUSATE/SENNOSIDES ) [Concomitant]
  13. VITAMIN D [Concomitant]

REACTIONS (6)
  - ARTERIOSCLEROSIS CORONARY ARTERY [None]
  - ARTERIOSPASM CORONARY [None]
  - CHEST PAIN [None]
  - ELECTROCARDIOGRAM ST SEGMENT ELEVATION [None]
  - INFUSION SITE PAIN [None]
  - VENTRICULAR HYPERTROPHY [None]
